FAERS Safety Report 16426832 (Version 1)
Quarter: 2019Q2

REPORT INFORMATION
  Report Type: Spontaneous
  Country: US (occurrence: US)
  Receive Date: 20190613
  Receipt Date: 20190613
  Transmission Date: 20190711
  Serious: Yes (Hospitalization, Other)
  Sender: FDA-Public Use
  Company Number: US-TEVA-2019-US-1061355

PATIENT
  Age: 62 Year
  Sex: Male

DRUGS (1)
  1. GEMCITABINE [Suspect]
     Active Substance: GEMCITABINE\GEMCITABINE HYDROCHLORIDE
     Indication: PANCREATIC CARCINOMA
     Dosage: CUMULATIVE DOSE OF 53.4 G/M2
     Route: 065

REACTIONS (2)
  - Thrombotic microangiopathy [Not Recovered/Not Resolved]
  - End stage renal disease [Not Recovered/Not Resolved]
